FAERS Safety Report 8846073 (Version 1)
Quarter: 2012Q4

REPORT INFORMATION
  Report Type: 
  Country: BR (occurrence: BR)
  Receive Date: 20121017
  Receipt Date: 20121017
  Transmission Date: 20130627
  Serious: Yes (Other)
  Sender: FDA-Public Use
  Company Number: BR-BRISTOL-MYERS SQUIBB COMPANY-17031691

PATIENT
  Age: 73 Year
  Sex: Female
  Weight: 73 kg

DRUGS (6)
  1. HYDREA CAPS 500 MG [Suspect]
     Indication: POLYCYTHAEMIA VERA
     Dosage: On monday dosage:2 dosage form
     Route: 048
  2. METFORMIN [Concomitant]
     Dates: start: 201209
  3. DIOVAN [Concomitant]
  4. AMLODIPINE [Concomitant]
  5. ESCITALOPRAM OXALATE [Concomitant]
  6. TICLOPIDINE [Concomitant]

REACTIONS (4)
  - Diabetes mellitus [Unknown]
  - Pruritus [Not Recovered/Not Resolved]
  - Depression [Unknown]
  - Haemoglobin increased [Unknown]
